FAERS Safety Report 11545001 (Version 1)
Quarter: 2015Q3

REPORT INFORMATION
  Report Type: Report from Study
  Country: DE (occurrence: DE)
  Receive Date: 20150924
  Receipt Date: 20150924
  Transmission Date: 20151125
  Serious: Yes (Death, Hospitalization, Other)
  Sender: FDA-Public Use
  Company Number: DE-VIIV HEALTHCARE ULC-B0850450A

PATIENT
  Age: 71 Year
  Sex: Male

DRUGS (6)
  1. PRAVASIN [Concomitant]
     Active Substance: PRAVASTATIN SODIUM
     Dates: start: 200107
  2. VITAMIN D [Concomitant]
     Active Substance: CHOLECALCIFEROL
     Dates: start: 20120110
  3. MARAVIROC [Suspect]
     Active Substance: MARAVIROC
     Indication: HIV INFECTION
     Route: 048
     Dates: start: 20120623
  4. RALTEGRAVIR. [Concomitant]
     Active Substance: RALTEGRAVIR
     Indication: HIV INFECTION
     Dates: start: 20100407
  5. METOPROLOL [Concomitant]
     Active Substance: METOPROLOL
     Dates: start: 200107
  6. NEPHROTRANS [Concomitant]
     Dates: start: 20120110

REACTIONS (2)
  - Myocardial infarction [Fatal]
  - Device related infection [Recovered/Resolved]

NARRATIVE: CASE EVENT DATE: 20120905
